FAERS Safety Report 10216817 (Version 1)
Quarter: 2014Q2

REPORT INFORMATION
  Report Type: Spontaneous
  Country: US (occurrence: US)
  Receive Date: 20140604
  Receipt Date: 20140604
  Transmission Date: 20141212
  Serious: Yes (Death)
  Sender: FDA-Public Use
  Company Number: US-ASTELLAS-2014US006295

PATIENT
  Age: 64 Year
  Sex: Female

DRUGS (1)
  1. VESICARE [Suspect]
     Indication: HYPERTONIC BLADDER
     Dosage: 1 TABLET, ONCE DAILY
     Route: 048
     Dates: start: 20120119, end: 20140430

REACTIONS (1)
  - Death [Fatal]
